FAERS Safety Report 6628112-2 (Version None)
Quarter: 2010Q1

REPORT INFORMATION
  Report Type: 
  Country: None (occurrence: None)
  Receive Date: 20100311
  Receipt Date: 20090930
  Transmission Date: 20100710
  Serious: No
  Sender: FDA-Public Use
  Company Number: A0809693A

PATIENT
  Age: 24 Year
  Sex: Male

DRUGS (1)
  1. NICORETTE [Suspect]
     Indication: DRUG USE FOR UNKNOWN INDICATION

REACTIONS (7)
  - FACE OEDEMA [None]
  - INTENTIONAL DRUG MISUSE [None]
  - MALAISE [None]
  - NICOTINE DEPENDENCE [None]
  - SKIN ODOUR ABNORMAL [None]
  - URINE ODOUR ABNORMAL [None]
  - WEIGHT DECREASED [None]
